FAERS Safety Report 5514055-4 (Version None)
Quarter: 2007Q4

REPORT INFORMATION
  Report Type: 
  Country: None (occurrence: None)
  Receive Date: 20071113
  Receipt Date: 20071031
  Transmission Date: 20080405
  Serious: Yes (Other)
  Sender: FDA-Public Use
  Company Number: GB-BAUSCH-2007BL003933

PATIENT
  Age: 60 Year
  Sex: Female

DRUGS (2)
  1. PREDNISOLONE SODIUM PHOSPHATE [Suspect]
     Indication: DRUG USE FOR UNKNOWN INDICATION
  2. EZETIMIBE [Suspect]
     Indication: DRUG USE FOR UNKNOWN INDICATION
     Route: 048

REACTIONS (1)
  - SYSTEMIC LUPUS ERYTHEMATOSUS [None]
